FAERS Safety Report 5252957-7 (Version None)
Quarter: 2007Q1

REPORT INFORMATION
  Report Type: 
  Country: None (occurrence: None)
  Receive Date: 20061201
  Receipt Date: 20060827
  Transmission Date: 20070707
  Serious: No
  Sender: FDA-Public Use
  Company Number: 2006PV020163

PATIENT
  Age: 70 Year
  Sex: Male
  Weight: 84.8226 kg

DRUGS (4)
  1. BYETTA [Suspect]
     Indication: DIABETES MELLITUS NON-INSULIN-DEPENDENT
     Dosage: 5 MCG;BID;SC
     Route: 058
     Dates: start: 20060823, end: 20060824
  2. BYETTA [Suspect]
     Indication: DIABETES MELLITUS NON-INSULIN-DEPENDENT
     Dosage: 5 MCG;BID;SC
     Route: 058
     Dates: start: 20060825
  3. STARLIX [Concomitant]
  4. METFORMIN HCL [Concomitant]

REACTIONS (2)
  - DIARRHOEA [None]
  - ENERGY INCREASED [None]
